FAERS Safety Report 8407185-0 (Version None)
Quarter: 2012Q2

REPORT INFORMATION
  Report Type: 
  Country: None (occurrence: None)
  Receive Date: 20120604
  Receipt Date: 20120530
  Transmission Date: 20120825
  Serious: Yes (Hospitalization)
  Sender: FDA-Public Use
  Company Number: AU-ROCHE-1049070

PATIENT
  Sex: Female
  Weight: 54.5 kg

DRUGS (6)
  1. DEXAMETHASONE [Concomitant]
     Route: 048
  2. AMLODIPINE [Concomitant]
  3. ROSUVASTATIN [Concomitant]
     Dosage: DAILY
     Route: 048
  4. PERINDOPRIL ERBUMINE [Concomitant]
     Route: 048
     Dates: start: 20120305
  5. AVASTIN [Suspect]
     Indication: LUNG ADENOCARCINOMA METASTATIC
     Route: 042
     Dates: start: 20120213, end: 20120309
  6. ONDANSETRON [Concomitant]
     Route: 048

REACTIONS (6)
  - HYPERTENSION [None]
  - VISUAL IMPAIRMENT [None]
  - PHOTOPHOBIA [None]
  - BLOOD PRESSURE INCREASED [None]
  - BLOOD PRESSURE INADEQUATELY CONTROLLED [None]
  - HEADACHE [None]
